FAERS Safety Report 25648426 (Version 1)
Quarter: 2025Q3

REPORT INFORMATION
  Report Type: Report from Study
  Country: GB (occurrence: GB)
  Receive Date: 20250806
  Receipt Date: 20250806
  Transmission Date: 20251020
  Serious: Yes (Hospitalization, Other)
  Sender: ALEXION PHARMACEUTICALS
  Company Number: GB-ASTRAZENECA-202506GBR002822GB

PATIENT
  Age: 31 Year
  Sex: Male

DRUGS (2)
  1. ULTOMIRIS [Suspect]
     Active Substance: RAVULIZUMAB-CWVZ
     Indication: Paroxysmal nocturnal haemoglobinuria
     Dosage: 3300 MILLIGRAM, Q8W
  2. VOYDEYA [Suspect]
     Active Substance: DANICOPAN
     Route: 065

REACTIONS (24)
  - Haematochezia [Unknown]
  - Influenza [Unknown]
  - Jaundice [Unknown]
  - Fatigue [Not Recovered/Not Resolved]
  - Dyspnoea exertional [Unknown]
  - Abdominal pain [Not Recovered/Not Resolved]
  - Retching [Not Recovered/Not Resolved]
  - Vomiting [Unknown]
  - Proctalgia [Unknown]
  - Chest discomfort [Unknown]
  - Dizziness [Unknown]
  - Headache [Not Recovered/Not Resolved]
  - Asthenia [Unknown]
  - Vision blurred [Unknown]
  - Tachycardia [Unknown]
  - Pain in jaw [Unknown]
  - Arthralgia [Unknown]
  - Pruritus [Unknown]
  - Night sweats [Not Recovered/Not Resolved]
  - Decreased appetite [Unknown]
  - Dysuria [Unknown]
  - Mucous stools [Unknown]
  - Pain in extremity [Unknown]
  - Chromaturia [Unknown]
